FAERS Safety Report 20490934 (Version 1)
Quarter: 2022Q1

REPORT INFORMATION
  Report Type: Report from Study
  Country: DE (occurrence: DE)
  Receive Date: 20220218
  Receipt Date: 20220218
  Transmission Date: 20220423
  Serious: Yes (Life-Threatening, Hospitalization)
  Sender: FDA-Public Use
  Company Number: DE-AMGEN-DEUCT2019134094

PATIENT
  Age: 70 Year
  Sex: Male
  Weight: 85 kg

DRUGS (5)
  1. PANITUMUMAB [Suspect]
     Active Substance: PANITUMUMAB
     Indication: Colorectal cancer metastatic
     Dosage: 510 MILLIGRAM
     Route: 042
     Dates: start: 20170330, end: 20170524
  2. PANITUMUMAB [Suspect]
     Active Substance: PANITUMUMAB
     Dosage: 510 MILLIGRAM
     Route: 042
     Dates: start: 20170607
  3. LEUCOVORIN [Suspect]
     Active Substance: LEUCOVORIN
     Indication: Colorectal cancer metastatic
     Dosage: 800 MILLIGRAM
     Route: 042
     Dates: start: 20170329
  4. FLUOROURACIL [Suspect]
     Active Substance: FLUOROURACIL
     Indication: Colorectal cancer metastatic
     Dosage: 5600 MILLIGRAM
     Route: 042
     Dates: start: 20170329
  5. OXALIPLATIN [Suspect]
     Active Substance: OXALIPLATIN
     Indication: Colorectal cancer metastatic
     Dosage: 170 MILLIGRAM
     Route: 042
     Dates: start: 20170329

REACTIONS (1)
  - Dyspnoea [Recovered/Resolved]

NARRATIVE: CASE EVENT DATE: 20170510
